FAERS Safety Report 8424957-7 (Version None)
Quarter: 2012Q2

REPORT INFORMATION
  Report Type: 
  Country: None (occurrence: None)
  Receive Date: 20120611
  Receipt Date: 20120601
  Transmission Date: 20120825
  Serious: Yes (Other)
  Sender: FDA-Public Use
  Company Number: US-UCBSA-058696

PATIENT
  Sex: Male

DRUGS (3)
  1. KEPPRA XR [Suspect]
     Indication: CONVULSION
  2. KEPPRA [Concomitant]
     Dosage: 500MG FOR ABOUT 6YEARS
  3. VIMPAT [Suspect]
     Indication: CONVULSION

REACTIONS (1)
  - CONVULSION [None]
